FAERS Safety Report 4613280-4 (Version None)
Quarter: 2005Q1

REPORT INFORMATION
  Report Type: 
  Country: None (occurrence: None)
  Receive Date: 20050315
  Receipt Date: 20030320
  Transmission Date: 20050727
  Serious: No
  Sender: FDA-Public Use
  Company Number: 5033

PATIENT
  Age: 29 Year
  Sex: Female

DRUGS (4)
  1. MIDAZOLAM [Suspect]
     Dates: start: 20011016, end: 20011016
  2. SUCCINYLCHOLINE CHLORIDE [Suspect]
     Indication: SENSORY DISTURBANCE
  3. PROPOFOL [Concomitant]
  4. MORPHINE [Concomitant]

REACTIONS (7)
  - ERYTHEMA [None]
  - HYPERTONIA [None]
  - HYPOTENSION [None]
  - HYPOVENTILATION [None]
  - HYPOXIA [None]
  - MUSCLE RIGIDITY [None]
  - TACHYCARDIA [None]
